FAERS Safety Report 5151900-9 (Version None)
Quarter: 2006Q4

REPORT INFORMATION
  Report Type: 
  Country: None (occurrence: None)
  Receive Date: 20061106
  Receipt Date: 20061023
  Transmission Date: 20070319
  Serious: Yes (Hospitalization)
  Sender: FDA-Public Use
  Company Number: 2006-149654-NL

PATIENT
  Age: 70 Year
  Sex: Male

DRUGS (1)
  1. TICE BCG [Suspect]
     Dosage: DF INTRAVESICAL
     Route: 043

REACTIONS (5)
  - ACUTE RESPIRATORY FAILURE [None]
  - BOVINE TUBERCULOSIS [None]
  - IATROGENIC INFECTION [None]
  - POST PROCEDURAL COMPLICATION [None]
  - SHOCK [None]
